FAERS Safety Report 11880301 (Version 1)
Quarter: 2015Q4

REPORT INFORMATION
  Report Type: Spontaneous
  Country: US (occurrence: US)
  Receive Date: 20151230
  Receipt Date: 20151230
  Transmission Date: 20160305
  Serious: No
  Sender: FDA-Public Use
  Company Number: US-009507513-1512USA014116

PATIENT
  Sex: Female

DRUGS (1)
  1. NUVARING [Suspect]
     Active Substance: ETHINYL ESTRADIOL\ETONOGESTREL
     Dosage: 1 RING/3 WEEKS
     Route: 067

REACTIONS (3)
  - Device difficult to use [Recovered/Resolved]
  - Device breakage [Recovered/Resolved]
  - No adverse event [Unknown]
